FAERS Safety Report 14080564 (Version 1)
Quarter: 2017Q4

REPORT INFORMATION
  Report Type: Spontaneous
  Country: US (occurrence: US)
  Receive Date: 20171012
  Receipt Date: 20171012
  Transmission Date: 20180321
  Serious: No
  Sender: FDA-Public Use
  Company Number: US-ASTRAZENECA-2014SE23227

PATIENT
  Age: 765 Month
  Sex: Female
  Weight: 66.7 kg

DRUGS (30)
  1. VITAMIN B COMPLEX [Concomitant]
     Active Substance: CYANOCOBALAMIN\DEXPANTHENOL\NIACINAMIDE\PYRIDOXINE HYDROCHLORIDE\RIBOFLAVIN 5^-PHOSPHATE SODIUM\THIAMINE HYDROCHLORIDE\VITAMIN B COMPLEX
     Dosage: UNK UNK, QD
     Route: 065
  2. COQ10 [Concomitant]
     Active Substance: UBIDECARENONE
     Route: 065
  3. PEPTO-BISMOL [Concomitant]
     Active Substance: BISMUTH SUBSALICYLATE
     Route: 065
  4. TYLENOL [Concomitant]
     Active Substance: ACETAMINOPHEN
     Dosage: UNK UNK, PRN AS REQUIRED
     Route: 065
  5. DIPHENOXYLATE [Concomitant]
     Active Substance: DIPHENOXYLATE
     Dosage: 1 DF, PRN1.0DF AS REQUIRED
     Route: 065
  6. LANTUS [Concomitant]
     Active Substance: INSULIN GLARGINE
     Dosage: 1DF=70 UNITS
     Route: 065
  7. VITAMIN C [Concomitant]
     Active Substance: ASCORBIC ACID
     Dosage: 500 MG, QD
     Route: 065
  8. TRAZODONE HYDROCHLORIDE. [Concomitant]
     Active Substance: TRAZODONE HYDROCHLORIDE
     Route: 065
  9. MELATONIN [Concomitant]
     Active Substance: MELATONIN
     Route: 065
  10. BYDUREON [Suspect]
     Active Substance: EXENATIDE
     Indication: TYPE 2 DIABETES MELLITUS
     Dosage: UNK
     Route: 058
     Dates: start: 20141014
  11. IMODIUM [Concomitant]
     Active Substance: LOPERAMIDE HYDROCHLORIDE
     Route: 065
  12. BYDUREON [Suspect]
     Active Substance: EXENATIDE
     Indication: TYPE 2 DIABETES MELLITUS
     Dosage: 2.0MG UNKNOWN
     Route: 058
  13. OMEPRAZOLE. [Concomitant]
     Active Substance: OMEPRAZOLE
     Dosage: 20 MG, QD
     Route: 065
  14. VITAMIN B12 [Concomitant]
     Active Substance: CYANOCOBALAMIN
     Dosage: 1000 MG, QD
     Route: 065
  15. BYDUREON [Suspect]
     Active Substance: EXENATIDE
     Indication: TYPE 2 DIABETES MELLITUS
     Route: 058
  16. PSYLLIUM [Concomitant]
     Active Substance: PLANTAGO SEED
     Route: 065
  17. MULTIVITAMIN [Concomitant]
     Active Substance: VITAMINS
     Route: 065
  18. FISH OIL [Concomitant]
     Active Substance: FISH OIL
     Route: 065
  19. BUPROPION. [Concomitant]
     Active Substance: BUPROPION
     Dosage: 150 MG, QD
     Route: 065
  20. CLONAZEPAM. [Concomitant]
     Active Substance: CLONAZEPAM
     Dosage: .5 MG, BID
     Route: 065
  21. BYDUREON [Suspect]
     Active Substance: EXENATIDE
     Indication: TYPE 2 DIABETES MELLITUS
     Route: 058
     Dates: start: 20120607
  22. VITAMIN D [Concomitant]
     Active Substance: CHOLECALCIFEROL
     Dosage: 2 KIU, QD
     Route: 065
  23. DICYCLOMINE [Concomitant]
     Active Substance: DICYCLOMINE HYDROCHLORIDE
     Dosage: 20 MG, TID
     Route: 065
  24. MELOXICAM. [Concomitant]
     Active Substance: MELOXICAM
     Dosage: 7.5 MG, BID
     Route: 065
  25. ACETYLSALICYLIC ACID [Concomitant]
     Active Substance: ASPIRIN
     Dosage: 81 MG, UNK
     Route: 065
  26. FENOFIBRATE. [Concomitant]
     Active Substance: FENOFIBRATE
     Dosage: 200 MG, QD
     Route: 065
  27. METAMUCIL [Concomitant]
     Active Substance: PLANTAGO SEED
     Route: 065
  28. PERPHENAZINE. [Concomitant]
     Active Substance: PERPHENAZINE
     Dosage: 2 MG, BID
     Route: 065
  29. GLIMEPIRIDE. [Concomitant]
     Active Substance: GLIMEPIRIDE
     Dosage: 1 MG, QD
     Route: 065
  30. SIMVASTATIN. [Concomitant]
     Active Substance: SIMVASTATIN
     Dosage: 40 MG, QD
     Route: 065

REACTIONS (15)
  - Rhinorrhoea [Unknown]
  - Drug dose omission [Recovered/Resolved]
  - Cough [Not Recovered/Not Resolved]
  - Injection site haematoma [Recovered/Resolved]
  - Gastrointestinal disorder [Unknown]
  - Injection site bruising [Recovered/Resolved]
  - Inflammatory bowel disease [Unknown]
  - Blood glucose increased [Unknown]
  - Injection site haemorrhage [Unknown]
  - Product quality issue [Unknown]
  - Proctitis [Not Recovered/Not Resolved]
  - Depression [Unknown]
  - Malaise [Unknown]
  - Visual impairment [Unknown]
  - Injection site pain [Unknown]

NARRATIVE: CASE EVENT DATE: 201312
